FAERS Safety Report 6183633-4 (Version None)
Quarter: 2009Q2

REPORT INFORMATION
  Report Type: 
  Country: None (occurrence: None)
  Receive Date: 20090508
  Receipt Date: 20090504
  Transmission Date: 20091009
  Serious: No
  Sender: FDA-Public Use
  Company Number: US-JNJFOC-20090501214

PATIENT
  Sex: Male
  Weight: 99.79 kg

DRUGS (8)
  1. DURAGESIC-100 [Suspect]
     Indication: CANCER PAIN
     Route: 062
  2. CHEMOTHERAPY, NOS [Concomitant]
     Indication: NEOPLASM MALIGNANT
     Route: 048
  3. PREDNISONE [Concomitant]
     Indication: NEOPLASM MALIGNANT
     Route: 048
  4. GLIPIZIDE [Concomitant]
     Indication: DIABETES MELLITUS
     Route: 048
  5. ALPRAZOLAM [Concomitant]
     Indication: SLEEP DISORDER
     Route: 048
  6. DILAUDID [Concomitant]
     Indication: PAIN
     Route: 048
  7. ALLOPURINOL [Concomitant]
     Indication: BLOOD URIC ACID
     Route: 048
  8. LAXATIVES (NOS) [Concomitant]
     Indication: CONSTIPATION
     Route: 048

REACTIONS (3)
  - PAIN [None]
  - PRODUCT QUALITY ISSUE [None]
  - WRONG TECHNIQUE IN DRUG USAGE PROCESS [None]
